FAERS Safety Report 12936860 (Version 1)
Quarter: 2016Q4

REPORT INFORMATION
  Report Type: Spontaneous
  Country: US (occurrence: US)
  Receive Date: 20161114
  Receipt Date: 20161114
  Transmission Date: 20170207
  Serious: No
  Sender: FDA-Public Use
  Company Number: GXBR2016US000520

PATIENT
  Sex: Female

DRUGS (1)
  1. VITAMIN A AND D [Suspect]
     Active Substance: LANOLIN\PETROLATUM
     Indication: FUNGAL INFECTION
     Dosage: UNK DF, UNK
     Route: 061
     Dates: end: 20160110

REACTIONS (3)
  - Product use issue [Not Recovered/Not Resolved]
  - Drug ineffective [Not Recovered/Not Resolved]
  - Expired product administered [Not Recovered/Not Resolved]
